FAERS Safety Report 19495770 (Version 1)
Quarter: 2021Q3

REPORT INFORMATION
  Report Type: Spontaneous
  Country: US (occurrence: US)
  Receive Date: 20210701
  Receipt Date: 20210701
  Transmission Date: 20211014
  Serious: Yes (Hospitalization)
  Sender: FDA-Public Use
  Company Number: None

PATIENT
  Age: 13 Year
  Sex: Male

DRUGS (2)
  1. ETHOSUXIMIDE 250 MG NDC 59762225002 [Concomitant]
     Active Substance: ETHOSUXIMIDE
     Dates: start: 20201103, end: 20210601
  2. ETHOSUXOMIDE [Suspect]
     Active Substance: ETHOSUXIMIDE
     Indication: SEIZURE
     Route: 048

REACTIONS (2)
  - Seizure [None]
  - Product quality issue [None]
